FAERS Safety Report 7899061-7 (Version None)
Quarter: 2011Q4

REPORT INFORMATION
  Report Type: 
  Country: None (occurrence: None)
  Receive Date: 20111107
  Receipt Date: 20111102
  Transmission Date: 20120403
  Serious: Yes (Death, Hospitalization, Disabling)
  Sender: FDA-Public Use
  Company Number: US-MERCK-1105USA01973

PATIENT
  Age: 71 Year
  Sex: Male

DRUGS (3)
  1. CORTICOSTEROIDS (UNSPECIFIED) [Concomitant]
     Route: 065
     Dates: start: 20000101, end: 20110707
  2. FOSAMAX [Suspect]
     Indication: OSTEOPOROSIS
     Route: 048
     Dates: start: 20010101, end: 20080101
  3. FOSAMAX [Suspect]
     Indication: OSTEOPENIA
     Route: 048
     Dates: start: 20010101, end: 20080101

REACTIONS (10)
  - TOOTH EXTRACTION [None]
  - ADVERSE EVENT [None]
  - BACK DISORDER [None]
  - ORAL DISORDER [None]
  - HYPERTENSION [None]
  - HAEMORRHAGE [None]
  - FEMUR FRACTURE [None]
  - RESPIRATORY DISORDER [None]
  - DEATH [None]
  - DENTAL CARIES [None]
